FAERS Safety Report 8475380-0 (Version None)
Quarter: 2012Q2

REPORT INFORMATION
  Report Type: 
  Country: None (occurrence: None)
  Receive Date: 20120628
  Receipt Date: 20120618
  Transmission Date: 20120825
  Serious: Yes (Other)
  Sender: FDA-Public Use
  Company Number: NL-ROCHE-1079706

PATIENT
  Age: 44 Year
  Sex: Male

DRUGS (4)
  1. AMLODIPINE [Concomitant]
     Indication: HYPERTENSION
  2. RIBAVIRIN [Suspect]
     Indication: HEPATITIS C
  3. PEGINTERFERON ALFA-2A [Suspect]
     Indication: HEPATITIS C
     Dosage: DOSE INTERRUPTED FOR 3 WEEKS
  4. PEGINTERFERON ALFA-2A [Suspect]
     Dosage: THERAPY RESTARTED

REACTIONS (1)
  - RAYNAUD'S PHENOMENON [None]
